FAERS Safety Report 8906054 (Version 2)
Quarter: 2013Q1

REPORT INFORMATION
  Report Type: Spontaneous
  Country: DK (occurrence: DE)
  Receive Date: 20121109
  Receipt Date: 20130114
  Transmission Date: 20140127
  Serious: Yes (Life-Threatening, Hospitalization)
  Sender: FDA-Public Use
  Company Number: DE-FRI-1000040280

PATIENT
  Age: 86 Year
  Sex: Male

DRUGS (4)
  1. CITALOPRAM [Suspect]
     Dosage: 20 MG
     Route: 048
  2. ASS [Suspect]
     Dosage: 100 MG
  3. BISOPROLOL [Concomitant]
  4. FOSTER [Concomitant]

REACTIONS (2)
  - Gastric haemorrhage [Recovering/Resolving]
  - Drug interaction [Recovering/Resolving]
